FAERS Safety Report 11166985 (Version 1)
Quarter: 2015Q2

REPORT INFORMATION
  Report Type: Spontaneous
  Country: US (occurrence: None)
  Receive Date: 20150604
  Receipt Date: 20150604
  Transmission Date: 20150821
  Serious: Yes (Hospitalization)
  Sender: FDA-Public Use
  Company Number: None

PATIENT
  Age: 69 Year
  Sex: Male
  Weight: 85.23 kg

DRUGS (12)
  1. ASPIRIN. [Concomitant]
     Active Substance: ASPIRIN
  2. HARVONI [Suspect]
     Active Substance: LEDIPASVIR\SOFOSBUVIR
     Indication: HEPATITIS C
     Route: 048
     Dates: start: 20150227
  3. LISINOPRIL (PRINIVIL, ZESTRIL) [Concomitant]
  4. HYOSCYAMINE (LEVBID) [Concomitant]
  5. TORSEMIDE (DEMADEX) [Concomitant]
  6. CARVEDILOL (COREG) [Concomitant]
  7. PLAVIX [Concomitant]
     Active Substance: CLOPIDOGREL BISULFATE
  8. GLIPIZIDE (GLUCOTROL) [Concomitant]
  9. VIAGRA [Concomitant]
     Active Substance: SILDENAFIL CITRATE
  10. LIPITOR [Concomitant]
     Active Substance: ATORVASTATIN CALCIUM
  11. VENLAFAXINE (EFFEXOR-XR) [Concomitant]
  12. ZOLPIDEM (AMBIEN CR) [Concomitant]

REACTIONS (1)
  - Cardiac failure congestive [None]

NARRATIVE: CASE EVENT DATE: 20150518
